FAERS Safety Report 7525039-9 (Version None)
Quarter: 2011Q2

REPORT INFORMATION
  Report Type: 
  Country: None (occurrence: None)
  Receive Date: 20110606
  Receipt Date: 20110531
  Transmission Date: 20111010
  Serious: Yes (Death)
  Sender: FDA-Public Use
  Company Number: US-CELGENEUS-163-21880-11060090

PATIENT
  Sex: Male
  Weight: 83.082 kg

DRUGS (14)
  1. DURAGESIC-100 [Concomitant]
     Route: 065
     Dates: end: 20110513
  2. ADVAIR DISKUS 100/50 [Concomitant]
     Dosage: 250/50
     Route: 065
     Dates: end: 20110513
  3. CENTRUM [Concomitant]
     Dosage: 1
     Route: 065
     Dates: end: 20110513
  4. COLACE [Concomitant]
     Dosage: 100 MILLIGRAM
     Route: 065
     Dates: end: 20110513
  5. ASCORBIC ACID [Concomitant]
     Dosage: 1000
     Route: 065
     Dates: end: 20110513
  6. PRILOSEC [Concomitant]
     Dosage: 20 MILLIGRAM
     Route: 065
     Dates: end: 20110513
  7. PROSCAR [Concomitant]
     Dosage: 5 MILLIGRAM
     Route: 065
     Dates: end: 20110513
  8. DECADRON [Concomitant]
     Dosage: 20 MILLIGRAM
     Route: 065
     Dates: end: 20110513
  9. ZOCOR [Concomitant]
     Route: 065
     Dates: end: 20110513
  10. LYRICA [Concomitant]
     Route: 065
     Dates: end: 20110513
  11. LORTAB [Concomitant]
     Route: 065
     Dates: end: 20110513
  12. ZYLOPRIM [Concomitant]
     Route: 065
     Dates: end: 20110513
  13. COREG [Concomitant]
     Dosage: 2.5 MILLIGRAM
     Route: 065
     Dates: end: 20110513
  14. REVLIMID [Suspect]
     Indication: MULTIPLE MYELOMA
     Dosage: 25 MILLIGRAM
     Route: 048
     Dates: start: 20110329, end: 20110513

REACTIONS (2)
  - MULTIPLE MYELOMA [None]
  - NO THERAPEUTIC RESPONSE [None]
